FAERS Safety Report 6314813-2 (Version None)
Quarter: 2009Q3

REPORT INFORMATION
  Report Type: 
  Country: None (occurrence: None)
  Receive Date: 20090817
  Receipt Date: 20090323
  Transmission Date: 20100115
  Serious: Yes (Other)
  Sender: FDA-Public Use
  Company Number: INDAB-09-0120

PATIENT
  Sex: Female

DRUGS (1)
  1. ABRAXANE [Suspect]
     Indication: CERVIX CARCINOMA
     Dosage: (100 MG, WEEKLY), INTRAVENOUS
     Route: 042
     Dates: start: 20090224

REACTIONS (5)
  - COOMBS POSITIVE HAEMOLYTIC ANAEMIA [None]
  - HAEMORRHAGE [None]
  - MALIGNANT NEOPLASM PROGRESSION [None]
  - TUMOUR HAEMORRHAGE [None]
  - UTERINE CANCER [None]
